FAERS Safety Report 9839223 (Version 3)
Quarter: 2014Q1

REPORT INFORMATION
  Report Type: Spontaneous
  Country: BR (occurrence: BR)
  Receive Date: 20140123
  Receipt Date: 20140128
  Transmission Date: 20141002
  Serious: Yes (Other)
  Sender: FDA-Public Use
  Company Number: BR-ASTRAZENECA-2013SE86538

PATIENT
  Age: 63 Year
  Sex: Male
  Weight: 113 kg

DRUGS (7)
  1. CAPRELSA [Suspect]
     Indication: MEDULLARY THYROID CANCER
     Route: 048
     Dates: start: 201309
  2. PURAN T4 [Concomitant]
     Indication: HORMONE REPLACEMENT THERAPY
     Route: 048
     Dates: start: 2013
  3. PROSSO [Concomitant]
     Indication: MEDULLARY THYROID CANCER
     Route: 048
     Dates: start: 2013
  4. VALSARTAN [Concomitant]
     Indication: BLOOD PRESSURE FLUCTUATION
     Route: 048
     Dates: start: 201309
  5. AMLODIPINE [Concomitant]
     Indication: BLOOD PRESSURE FLUCTUATION
     Route: 048
     Dates: start: 201309
  6. IMOSEC [Concomitant]
     Indication: DIARRHOEA
     Dosage: BID
     Route: 048
     Dates: start: 201309
  7. ZOMETA [Concomitant]
     Dates: start: 2013

REACTIONS (5)
  - Bone pain [Not Recovered/Not Resolved]
  - Blood pressure systolic increased [Recovered/Resolved]
  - Blood calcitonin increased [Not Recovered/Not Resolved]
  - Diarrhoea [Not Recovered/Not Resolved]
  - Solar dermatitis [Unknown]
